FAERS Safety Report 5485114-X (Version None)
Quarter: 2007Q4

REPORT INFORMATION
  Report Type: 
  Country: None (occurrence: None)
  Receive Date: 20071009
  Receipt Date: 20071009
  Transmission Date: 20080405
  Serious: Yes (Hospitalization)
  Sender: FDA-Public Use
  Company Number: None

PATIENT
  Sex: Female

DRUGS (1)
  1. BEVACIZUMAB [Suspect]
     Indication: PANCREATIC CARCINOMA METASTATIC
     Dosage: 10 MG. OVER 90MIN. IV
     Route: 042
     Dates: start: 20070726

REACTIONS (2)
  - DEVICE RELATED INFECTION [None]
  - RENAL FAILURE ACUTE [None]
